FAERS Safety Report 16854586 (Version 3)
Quarter: 2020Q2

REPORT INFORMATION
  Report Type: Report from Study
  Country: US (occurrence: US)
  Receive Date: 20190926
  Receipt Date: 20200502
  Transmission Date: 20200713
  Serious: No
  Sender: FDA-Public Use
  Company Number: PHEH2019US039426

PATIENT
  Sex: Female

DRUGS (1)
  1. COSENTYX [Suspect]
     Active Substance: SECUKINUMAB
     Indication: PSORIASIS
     Dosage: 300 MG, QW
     Route: 058
     Dates: start: 20190923

REACTIONS (7)
  - Malaise [Unknown]
  - Nail disorder [Unknown]
  - Feeling abnormal [Recovering/Resolving]
  - Oral pain [Unknown]
  - Dizziness [Recovering/Resolving]
  - Urticaria [Unknown]
  - Upper respiratory tract infection [Unknown]
